FAERS Safety Report 5908563-1 (Version None)
Quarter: 2008Q4

REPORT INFORMATION
  Report Type: 
  Country: None (occurrence: None)
  Receive Date: 20081001
  Receipt Date: 20080920
  Transmission Date: 20090506
  Serious: Yes (Other)
  Sender: FDA-Public Use
  Company Number: CHPA2008US15902

PATIENT
  Age: 78 Year
  Sex: Female
  Weight: 49.9 kg

DRUGS (2)
  1. EXCEDRIN (MIGRAINE) [Suspect]
     Indication: ARTHRITIS
     Dosage: 2 DF, BID, ORAL
     Route: 048
     Dates: end: 20080920
  2. ACETAMINOPHEN [Suspect]
     Indication: ARTHRITIS
     Dosage: 2 DF, BID, ORAL
     Route: 048

REACTIONS (2)
  - BLOOD PRESSURE INCREASED [None]
  - DRUG ADMINISTRATION ERROR [None]
